FAERS Safety Report 4776316-6 (Version None)
Quarter: 2005Q3

REPORT INFORMATION
  Report Type: 
  Country: None (occurrence: None)
  Receive Date: 20050921
  Receipt Date: 20050913
  Transmission Date: 20060218
  Serious: Yes (Life-Threatening)
  Sender: FDA-Public Use
  Company Number: 2005128032

PATIENT
  Age: 25 Year
  Sex: Female
  Weight: 57 kg

DRUGS (1)
  1. DEPO-PROVERA [Suspect]
     Indication: CONTRACEPTION
     Dosage: MOST RECENT INJECTION, INTRAMUSCULAR
     Route: 030
     Dates: start: 20050816, end: 20050816

REACTIONS (4)
  - COUGH [None]
  - DIZZINESS [None]
  - NAUSEA [None]
  - URTICARIA [None]
